FAERS Safety Report 8490240-7 (Version None)
Quarter: 2012Q3

REPORT INFORMATION
  Report Type: 
  Country: None (occurrence: None)
  Receive Date: 20120705
  Receipt Date: 20120119
  Transmission Date: 20120928
  Serious: No
  Sender: FDA-Public Use
  Company Number: US-BAUSCH-2012BL000412

PATIENT
  Age: 48 Year
  Sex: Male

DRUGS (1)
  1. OPCON-A [Suspect]
     Indication: OCULAR HYPERAEMIA
     Route: 047
     Dates: start: 20110101, end: 20120116

REACTIONS (2)
  - LACRIMATION INCREASED [None]
  - LACRIMAL DISORDER [None]
